FAERS Safety Report 22321429 (Version 1)
Quarter: 2023Q2

REPORT INFORMATION
  Report Type: Spontaneous
  Country: US (occurrence: US)
  Receive Date: 20230515
  Receipt Date: 20230515
  Transmission Date: 20230721
  Serious: No
  Sender: FDA-Public Use
  Company Number: US-ELI_LILLY_AND_COMPANY-US202305008372

PATIENT

DRUGS (2)
  1. MOUNJARO [Suspect]
     Active Substance: TIRZEPATIDE
     Indication: Product used for unknown indication
     Dosage: 5 MG, UNKNOWN
     Route: 058
  2. HYDROCODONE [Suspect]
     Active Substance: HYDROCODONE
     Indication: Back pain
     Dosage: UNK UNK, UNKNOWN
     Route: 065

REACTIONS (1)
  - Memory impairment [Not Recovered/Not Resolved]
